FAERS Safety Report 11823092 (Version 4)
Quarter: 2016Q1

REPORT INFORMATION
  Report Type: Spontaneous
  Country: US (occurrence: US)
  Receive Date: 20151210
  Receipt Date: 20160204
  Transmission Date: 20160525
  Serious: Yes (Other)
  Sender: FDA-Public Use
  Company Number: US-009507513-1512USA003701

PATIENT
  Age: 60 Year
  Sex: Male

DRUGS (17)
  1. LISINOPRIL. [Concomitant]
     Active Substance: LISINOPRIL
     Route: 048
  2. KEYTRUDA [Suspect]
     Active Substance: PEMBROLIZUMAB
     Dosage: 215 MG/ Q21 DAY
     Dates: start: 20151016
  3. KEYTRUDA [Suspect]
     Active Substance: PEMBROLIZUMAB
     Dosage: 215 MG/ Q21 DAY
     Dates: start: 20151124
  4. KEYTRUDA [Suspect]
     Active Substance: PEMBROLIZUMAB
     Dosage: 215 MG/ Q21 DAY
     Dates: start: 20151215
  5. SILDENAFIL CITRATE. [Concomitant]
     Active Substance: SILDENAFIL CITRATE
  6. KEYTRUDA [Suspect]
     Active Substance: PEMBROLIZUMAB
     Dosage: 215 MG/ Q21 DAY
     Dates: start: 20151103
  7. FERROUS SULFATE [Concomitant]
     Active Substance: FERROUS SULFATE\FERROUS SULFATE, DRIED
  8. VEMURAFENIB [Concomitant]
     Active Substance: VEMURAFENIB
     Indication: MALIGNANT MELANOMA
     Dosage: UNK
     Dates: start: 20150623, end: 20150903
  9. KEYTRUDA [Suspect]
     Active Substance: PEMBROLIZUMAB
     Dosage: 215 MG/ Q21 DAY
     Dates: start: 20150925
  10. MEDROL [Concomitant]
     Active Substance: METHYLPREDNISOLONE
  11. ASPIRIN. [Concomitant]
     Active Substance: ASPIRIN
  12. GLIPIZIDE. [Concomitant]
     Active Substance: GLIPIZIDE
  13. KEYTRUDA [Suspect]
     Active Substance: PEMBROLIZUMAB
     Indication: MALIGNANT MELANOMA
     Dosage: 215 MG/ Q21 DAY
     Dates: start: 20150904
  14. ATORVASTATIN CALCIUM. [Concomitant]
     Active Substance: ATORVASTATIN CALCIUM
  15. KEYTRUDA [Suspect]
     Active Substance: PEMBROLIZUMAB
     Dosage: 215 MG/ Q21 DAY
     Dates: start: 20160105
  16. GEMFIBROZIL. [Concomitant]
     Active Substance: GEMFIBROZIL
  17. METFORMIN HYDROCHLORIDE. [Concomitant]
     Active Substance: METFORMIN HYDROCHLORIDE

REACTIONS (4)
  - Gastrointestinal haemorrhage [Unknown]
  - Dyspnoea exertional [Unknown]
  - Malignant neoplasm progression [Unknown]
  - Diverticulitis [Recovered/Resolved]

NARRATIVE: CASE EVENT DATE: 2015
